FAERS Safety Report 23724101 (Version 1)
Quarter: 2024Q2

REPORT INFORMATION
  Report Type: Spontaneous
  Country: FR (occurrence: FR)
  Receive Date: 20240409
  Receipt Date: 20240409
  Transmission Date: 20240716
  Serious: Yes (Other)
  Sender: FDA-Public Use
  Company Number: FR-ELI_LILLY_AND_COMPANY-FR202404000729

PATIENT
  Age: 26 Year
  Sex: Female

DRUGS (5)
  1. BARICITINIB [Suspect]
     Active Substance: BARICITINIB
     Indication: Dermatitis atopic
     Dosage: 4 MG, DAILY
     Route: 065
  2. UPADACITINIB [Suspect]
     Active Substance: UPADACITINIB
     Indication: Dermatitis atopic
     Dosage: UNK, UNKNOWN
     Route: 065
  3. UPADACITINIB [Suspect]
     Active Substance: UPADACITINIB
     Dosage: 30 UNK
     Route: 065
  4. DUPILUMAB [Concomitant]
     Active Substance: DUPILUMAB
     Indication: Dermatitis atopic
     Dosage: UNK, UNKNOWN
     Route: 065
  5. METHOTREXATE SODIUM [Concomitant]
     Active Substance: METHOTREXATE SODIUM
     Indication: Cutaneous T-cell lymphoma
     Dosage: UNK, UNKNOWN
     Route: 065

REACTIONS (1)
  - Cutaneous T-cell lymphoma stage IV [Unknown]
